FAERS Safety Report 4395797-3 (Version None)
Quarter: 2004Q3

REPORT INFORMATION
  Report Type: 
  Country: None (occurrence: None)
  Receive Date: 20040713
  Receipt Date: 20040408
  Transmission Date: 20050211
  Serious: Yes (Hospitalization)
  Sender: FDA-Public Use
  Company Number: US-ROCHE-364097

PATIENT
  Age: 74 Year
  Sex: Female
  Weight: 80.7 kg

DRUGS (13)
  1. XELODA [Suspect]
     Route: 048
     Dates: start: 20031209
  2. XELODA [Suspect]
     Route: 048
     Dates: start: 20040501
  3. TAXOTERE [Concomitant]
  4. ARIMIDEX [Concomitant]
     Dates: end: 20031215
  5. ZOMETA [Concomitant]
     Dates: start: 20031230
  6. DETROL [Concomitant]
     Dates: end: 20040407
  7. PRAVACHOL [Concomitant]
  8. ADALAT [Concomitant]
  9. ZANTAC [Concomitant]
  10. UNKNOWN DRUG [Concomitant]
  11. TUMS [Concomitant]
  12. GLYBURIDE [Concomitant]
  13. VITACON [Concomitant]

REACTIONS (14)
  - AXILLARY PAIN [None]
  - BREAST PAIN [None]
  - CONSTIPATION [None]
  - DIARRHOEA [None]
  - DIPLOPIA [None]
  - DRY MOUTH [None]
  - FALL [None]
  - FEMUR FRACTURE [None]
  - LUNG NEOPLASM [None]
  - METASTASES TO BONE [None]
  - NOCTURIA [None]
  - PATHOLOGICAL FRACTURE [None]
  - RHINITIS [None]
  - WEIGHT DECREASED [None]
